FAERS Safety Report 9012780 (Version 2)
Quarter: 2013Q1

REPORT INFORMATION
  Report Type: Spontaneous
  Country: US (occurrence: US)
  Receive Date: 20130114
  Receipt Date: 20130218
  Transmission Date: 20140127
  Serious: No
  Sender: FDA-Public Use
  Company Number: US-PFIZER INC-2013015288

PATIENT
  Age: 52 Year
  Sex: Male
  Weight: 95 kg

DRUGS (5)
  1. PRISTIQ [Suspect]
     Indication: DEPRESSION
     Dosage: 50 MG, DAILY
     Dates: start: 2012
  2. PRISTIQ [Suspect]
     Dosage: 100 MG, DAILY
  3. XANAX [Suspect]
     Indication: NERVOUSNESS
     Dosage: 1 MG, UNK
  4. ABILIFY [Suspect]
     Indication: DEPRESSION
     Dosage: 10 MG, DAILY
     Dates: start: 2012
  5. NORVASC [Concomitant]
     Indication: HYPERTENSION
     Dosage: 5 MG, DAILY

REACTIONS (3)
  - Drug ineffective [Unknown]
  - Impaired work ability [Unknown]
  - Malaise [Not Recovered/Not Resolved]
